FAERS Safety Report 16681255 (Version 2)
Quarter: 2019Q3

REPORT INFORMATION
  Report Type: Spontaneous
  Country: US (occurrence: US)
  Receive Date: 20190808
  Receipt Date: 20190821
  Transmission Date: 20191004
  Serious: Yes (Other)
  Sender: FDA-Public Use
  Company Number: US-ROCHE-2373713

PATIENT
  Age: 53 Year
  Sex: Male

DRUGS (2)
  1. VALIUM [Suspect]
     Active Substance: DIAZEPAM
     Indication: MUSCLE TWITCHING
     Route: 065
  2. MEPROBAMATE. [Interacting]
     Active Substance: MEPROBAMATE
     Indication: DEPRESSION
     Route: 065

REACTIONS (6)
  - Memory impairment [Unknown]
  - Toxicity to various agents [Unknown]
  - Drug interaction [Unknown]
  - Drug abuse [Unknown]
  - Cognitive disorder [Unknown]
  - Motor dysfunction [Unknown]
